FAERS Safety Report 7298888-2 (Version None)
Quarter: 2011Q1

REPORT INFORMATION
  Report Type: 
  Country: None (occurrence: None)
  Receive Date: 20110217
  Receipt Date: 20110204
  Transmission Date: 20110831
  Serious: Yes (Hospitalization, Other)
  Sender: FDA-Public Use
  Company Number: PHEH2008US06108

PATIENT
  Sex: Female

DRUGS (15)
  1. EFFEXOR [Concomitant]
  2. ESTRADERM [Suspect]
     Indication: HORMONE REPLACEMENT THERAPY
     Dosage: UNK
     Route: 062
     Dates: start: 19940608, end: 19970109
  3. COUMADIN [Concomitant]
  4. COLACE [Concomitant]
  5. PAXIL [Concomitant]
     Dosage: UNK
  6. ARIMIDEX [Concomitant]
  7. PROVERA [Suspect]
     Indication: HORMONE REPLACEMENT THERAPY
     Dosage: UNK
     Dates: start: 19930128, end: 19970109
  8. DECADRON [Concomitant]
  9. ATIVAN [Concomitant]
     Dosage: UNK
  10. METFORMIN [Concomitant]
  11. PREMPRO [Suspect]
     Indication: HORMONE REPLACEMENT THERAPY
     Dosage: UNK
     Dates: start: 19970109, end: 20020819
  12. KEFLEX [Concomitant]
  13. ZOLOFT [Concomitant]
  14. CALCIUM D SANDOZ [Concomitant]
  15. ACYCLOVIR [Concomitant]

REACTIONS (18)
  - NIGHT SWEATS [None]
  - RHINORRHOEA [None]
  - INSOMNIA [None]
  - OEDEMA PERIPHERAL [None]
  - FEAR OF DISEASE [None]
  - SCAR [None]
  - HOT FLUSH [None]
  - PALPITATIONS [None]
  - CELLULITIS [None]
  - FEELING ABNORMAL [None]
  - CONSTIPATION [None]
  - POLLAKIURIA [None]
  - ANXIETY [None]
  - METASTASES TO LYMPH NODES [None]
  - CONTUSION [None]
  - BREAST CANCER [None]
  - PAIN [None]
  - PSYCHIATRIC SYMPTOM [None]
